FAERS Safety Report 6059945-1 (Version None)
Quarter: 2009Q1

REPORT INFORMATION
  Report Type: 
  Country: None (occurrence: None)
  Receive Date: 20090130
  Receipt Date: 20090129
  Transmission Date: 20090719
  Serious: Yes (Other)
  Sender: FDA-Public Use
  Company Number: US-ROXANE LABORATORIES, INC.-2009-RO-00098RO

PATIENT
  Age: 11 Month
  Sex: Female

DRUGS (2)
  1. LORAZEPAM [Suspect]
     Indication: SEDATION
  2. LORAZEPAM [Suspect]

REACTIONS (1)
  - METABOLIC ACIDOSIS [None]
